FAERS Safety Report 8803160 (Version 2)
Quarter: 2015Q1

REPORT INFORMATION
  Report Type: Report from Study
  Country: US (occurrence: US)
  Receive Date: 20120924
  Receipt Date: 20150302
  Transmission Date: 20150721
  Serious: Yes (Death)
  Sender: FDA-Public Use
  Company Number: US-ROCHE-1102408

PATIENT
  Sex: Female

DRUGS (34)
  1. OXALIPLATIN. [Concomitant]
     Active Substance: OXALIPLATIN
     Route: 065
  2. ARANESP [Concomitant]
     Active Substance: DARBEPOETIN ALFA
     Dosage: 300 UNITS NOT MENTIONED
     Route: 065
  3. 5-FU [Concomitant]
     Active Substance: FLUOROURACIL
     Dosage: 459 (UNITS NOT MENTIONED)
     Route: 042
  4. 5-FU [Concomitant]
     Active Substance: FLUOROURACIL
     Dosage: 456 (UNITS NOT MENTIONED)
     Route: 042
  5. ABRAXANE [Concomitant]
     Active Substance: PACLITAXEL
     Dosage: 200 (UNITS NOT MENTIONED)
     Route: 065
  6. DECADRON [Concomitant]
     Active Substance: DEXAMETHASONE
     Route: 065
  7. ALOXI [Concomitant]
     Active Substance: PALONOSETRON HYDROCHLORIDE
     Route: 065
  8. ABRAXANE [Concomitant]
     Active Substance: PACLITAXEL
     Dosage: 156 (UNITS NOT MENTIONED)
     Route: 065
  9. DECADRON [Concomitant]
     Active Substance: DEXAMETHASONE
     Route: 065
  10. AVASTIN [Suspect]
     Active Substance: BEVACIZUMAB
     Indication: METASTASES TO PERITONEUM
     Route: 065
     Dates: start: 20081127
  11. ARANESP [Concomitant]
     Active Substance: DARBEPOETIN ALFA
     Route: 065
  12. LEUCOVORIN [Concomitant]
     Active Substance: LEUCOVORIN
     Dosage: 612 UNITS NOT MENTIONED
     Route: 065
  13. NEULASTA [Concomitant]
     Active Substance: PEGFILGRASTIM
     Route: 065
  14. ABRAXANE [Concomitant]
     Active Substance: PACLITAXEL
     Dosage: 119 (UNITS NOT MENTIONED)
     Route: 065
  15. AVASTIN [Suspect]
     Active Substance: BEVACIZUMAB
     Indication: OVARIAN CANCER
     Route: 065
     Dates: start: 20060814
  16. AVASTIN [Suspect]
     Active Substance: BEVACIZUMAB
     Indication: MALIGNANT NEOPLASM OF UTERINE ADNEXA
     Dosage: 934 (UNITS NOT MENTIONED)
     Route: 065
  17. AVASTIN [Suspect]
     Active Substance: BEVACIZUMAB
     Dosage: 880 (UNITS NOT MENTIONED)
     Route: 065
  18. OXALIPLATIN. [Concomitant]
     Active Substance: OXALIPLATIN
     Dosage: 130 (UNITS NOT MENTIONED)
     Route: 065
  19. ARANESP [Concomitant]
     Active Substance: DARBEPOETIN ALFA
     Dosage: 500 UNITS NOT MENTIONED
     Route: 065
  20. ALOXI [Concomitant]
     Active Substance: PALONOSETRON HYDROCHLORIDE
     Route: 042
  21. AVASTIN [Suspect]
     Active Substance: BEVACIZUMAB
     Dosage: 927 (UNITS NOT MENTIONED)
     Route: 065
  22. ABRAXANE [Concomitant]
     Active Substance: PACLITAXEL
     Route: 065
  23. ABRAXANE [Concomitant]
     Active Substance: PACLITAXEL
     Dosage: 158 (UNITS NOT MENTIONED)
     Route: 065
  24. AVASTIN [Suspect]
     Active Substance: BEVACIZUMAB
     Dosage: 930 (UNITS NOT MENTIONED)
     Route: 065
  25. AVASTIN [Suspect]
     Active Substance: BEVACIZUMAB
     Route: 042
  26. 5-FU [Concomitant]
     Active Substance: FLUOROURACIL
     Dosage: 2736 (UNITS NOT MENTIONED)
     Route: 042
  27. ARANESP [Concomitant]
     Active Substance: DARBEPOETIN ALFA
     Dosage: 400 (UNITS NOT PROVIDED)
     Route: 065
  28. 5-FU [Concomitant]
     Active Substance: FLUOROURACIL
     Dosage: 2754 (UNITS NOT MENTIONED)
     Route: 042
  29. ABRAXANE [Concomitant]
     Active Substance: PACLITAXEL
     Dosage: 160 UNITS NOT MENTIONED
     Route: 065
  30. AVASTIN [Suspect]
     Active Substance: BEVACIZUMAB
     Indication: RETROPERITONEAL CANCER
     Dosage: 940 (UNITS NOT MENTIONED)
     Route: 065
  31. AVASTIN [Suspect]
     Active Substance: BEVACIZUMAB
     Dosage: 906 (UNITS NOT MENTIONED)
     Route: 065
  32. LEUCOVORIN [Concomitant]
     Active Substance: LEUCOVORIN
     Dosage: 456 UNITS NOT MENTIONED
     Route: 065
  33. NEULASTA [Concomitant]
     Active Substance: PEGFILGRASTIM
     Dosage: 4 UNITS NOT MENTIONED
     Route: 065
  34. ABRAXANE [Concomitant]
     Active Substance: PACLITAXEL
     Route: 065

REACTIONS (2)
  - Off label use [Unknown]
  - Death [Fatal]
